FAERS Safety Report 12765919 (Version 9)
Quarter: 2018Q2

REPORT INFORMATION
  Report Type: Report from Study
  Country: US (occurrence: US)
  Receive Date: 20160921
  Receipt Date: 20180626
  Transmission Date: 20180711
  Serious: Yes (Hospitalization, Other)
  Sender: FDA-Public Use
  Company Number: PHHY2016US118072

PATIENT
  Age: 6 Year
  Sex: Female
  Weight: 20.7 kg

DRUGS (43)
  1. TOBI [Suspect]
     Active Substance: TOBRAMYCIN
     Dosage: 300 OT, BID
     Route: 055
     Dates: start: 20161003, end: 20161031
  2. TOBI [Suspect]
     Active Substance: TOBRAMYCIN
     Dosage: 300 OT, BID
     Route: 055
     Dates: start: 20161130, end: 20161228
  3. BETHKIS [Suspect]
     Active Substance: TOBRAMYCIN
     Indication: PRODUCT USED FOR UNKNOWN INDICATION
     Dosage: 300 OT, BID
     Route: 065
     Dates: start: 20170125, end: 20170222
  4. TOBRAMYCIN. [Suspect]
     Active Substance: TOBRAMYCIN
     Dosage: 300 OT, BID
     Route: 065
     Dates: start: 20171218
  5. TOBRAMYCIN. [Suspect]
     Active Substance: TOBRAMYCIN
     Dosage: 300 OT, BID
     Route: 065
     Dates: start: 20171101, end: 20171120
  6. ADVAIR HFA [Concomitant]
     Active Substance: FLUTICASONE PROPIONATE\SALMETEROL XINAFOATE
     Indication: CYSTIC FIBROSIS
     Dosage: UNK
     Route: 065
     Dates: start: 20160810
  7. SODIUM BICARBONATE. [Concomitant]
     Active Substance: SODIUM BICARBONATE
     Indication: CYSTIC FIBROSIS
     Dosage: UNK
     Route: 065
     Dates: start: 20150602
  8. NASONEX [Concomitant]
     Active Substance: MOMETASONE FUROATE
     Indication: CYSTIC FIBROSIS
     Dosage: UNK
     Route: 065
     Dates: start: 20150602
  9. PERIACTIN [Concomitant]
     Active Substance: CYPROHEPTADINE HYDROCHLORIDE
     Indication: CYSTIC FIBROSIS
     Dosage: UNK
     Route: 065
     Dates: start: 20160909
  10. TOBI [Suspect]
     Active Substance: TOBRAMYCIN
     Dosage: 300 OT, BID
     Route: 055
     Dates: start: 20170701, end: 20170729
  11. AUGMENTIN [Concomitant]
     Active Substance: AMOXICILLIN\CLAVULANATE POTASSIUM
     Indication: CYSTIC FIBROSIS
     Dosage: UNK
     Route: 065
     Dates: start: 20160518, end: 20160528
  12. CLARITIN [Concomitant]
     Active Substance: LORATADINE
     Indication: RHINITIS ALLERGIC
     Dosage: UNK
     Route: 065
     Dates: start: 20160428
  13. CREON [Concomitant]
     Active Substance: PANCRELIPASE AMYLASE\PANCRELIPASE LIPASE\PANCRELIPASE PROTEASE
     Indication: PANCREATIC FAILURE
     Dosage: UNK
     Route: 065
     Dates: start: 20140616
  14. FLONASE [Concomitant]
     Active Substance: FLUTICASONE PROPIONATE
     Indication: RHINITIS ALLERGIC
     Dosage: UNK
     Route: 065
     Dates: start: 20160428
  15. PREVACID [Concomitant]
     Active Substance: LANSOPRAZOLE
     Indication: CYSTIC FIBROSIS
     Dosage: UNK
     Route: 065
     Dates: start: 20150813
  16. PULMOZYME [Concomitant]
     Active Substance: DORNASE ALFA
     Indication: CYSTIC FIBROSIS
     Dosage: UNK
     Route: 065
     Dates: start: 20140905
  17. VENTOLIN [Concomitant]
     Active Substance: ALBUTEROL SULFATE
     Indication: CYSTIC FIBROSIS
     Dosage: UNK
     Route: 065
     Dates: start: 20150625
  18. TOBI [Suspect]
     Active Substance: TOBRAMYCIN
     Indication: FUNGAL INFECTION
     Dosage: 300 OT, BID
     Route: 055
     Dates: start: 20160820, end: 20160910
  19. CAYSTON [Suspect]
     Active Substance: AZTREONAM
     Indication: CYSTIC FIBROSIS
     Dosage: UNK
     Route: 065
     Dates: start: 20170530
  20. TOBRAMYCIN. [Suspect]
     Active Substance: TOBRAMYCIN
     Dosage: 300 OT, BID
     Route: 065
     Dates: start: 20170901, end: 20170929
  21. ALBUTEROL. [Concomitant]
     Active Substance: ALBUTEROL
     Indication: BRONCHOSPASM
     Dosage: QID
     Route: 055
     Dates: start: 20160908, end: 20160909
  22. BACTRIM [Concomitant]
     Active Substance: SULFAMETHOXAZOLE\TRIMETHOPRIM
     Indication: FUNGAL INFECTION
     Dosage: BID
     Route: 042
     Dates: start: 20160905, end: 20160909
  23. BACTRIM [Concomitant]
     Active Substance: SULFAMETHOXAZOLE\TRIMETHOPRIM
     Indication: CYSTIC FIBROSIS
     Dosage: 80MG-400MG
     Route: 065
     Dates: start: 20160909
  24. AUGMENTIN [Concomitant]
     Active Substance: AMOXICILLIN\CLAVULANATE POTASSIUM
     Dosage: UNK
     Route: 065
     Dates: start: 20171128, end: 20171212
  25. TOBI [Suspect]
     Active Substance: TOBRAMYCIN
     Dosage: 300 OT, BID
     Route: 055
     Dates: start: 20170701, end: 20170729
  26. CAYSTON [Suspect]
     Active Substance: AZTREONAM
     Dosage: 75 OT, TID
     Route: 065
     Dates: start: 20170601, end: 20170629
  27. TOBRAMYCIN. [Suspect]
     Active Substance: TOBRAMYCIN
     Indication: PRODUCT USED FOR UNKNOWN INDICATION
     Dosage: UNK
     Route: 065
     Dates: start: 20140616
  28. CEFTAZ [Concomitant]
     Indication: FUNGAL INFECTION
     Route: 042
     Dates: start: 20160822, end: 20160905
  29. LEVAQUIN [Concomitant]
     Active Substance: LEVOFLOXACIN
     Indication: INFECTIVE PULMONARY EXACERBATION OF CYSTIC FIBROSIS
     Dosage: UNK
     Route: 065
     Dates: start: 20170320, end: 20170403
  30. MIRALAX [Concomitant]
     Active Substance: POLYETHYLENE GLYCOL 3350
     Indication: CYSTIC FIBROSIS
     Dosage: UNK
     Route: 065
     Dates: start: 20160802
  31. CAYSTON [Suspect]
     Active Substance: AZTREONAM
     Dosage: 75 OT, TID
     Route: 065
     Dates: start: 20170801, end: 20170829
  32. TOBI [Suspect]
     Active Substance: TOBRAMYCIN
     Dosage: 300 OT, BID
     Route: 055
     Dates: start: 20170321, end: 20170417
  33. TOBI [Suspect]
     Active Substance: TOBRAMYCIN
     Dosage: 300 OT, BID
     Route: 055
     Dates: start: 20170501, end: 20170529
  34. BACTROBAN [Concomitant]
     Active Substance: MUPIROCIN\MUPIROCIN CALCIUM
     Indication: RHINITIS ALLERGIC
     Dosage: UNK
     Route: 065
     Dates: start: 20160428
  35. TOBI [Suspect]
     Active Substance: TOBRAMYCIN
     Indication: CYSTIC FIBROSIS LUNG
     Dosage: 300 OT, BID
     Route: 055
     Dates: start: 20160426, end: 20160524
  36. TOBI [Suspect]
     Active Substance: TOBRAMYCIN
     Indication: PSEUDOMONAS INFECTION
     Dosage: 300 OT, BID
     Route: 055
     Dates: start: 20160623, end: 20160721
  37. CAYSTON [Suspect]
     Active Substance: AZTREONAM
     Dosage: 75 OT, TID
     Route: 065
     Dates: start: 20171001, end: 20171029
  38. CAYSTON [Suspect]
     Active Substance: AZTREONAM
     Dosage: 75 OT, TID
     Route: 065
     Dates: start: 20171120, end: 20171217
  39. CLINDAMYCIN. [Concomitant]
     Active Substance: CLINDAMYCIN
     Indication: FUNGAL INFECTION
     Route: 042
     Dates: start: 20160902, end: 20160909
  40. FLOVENT [Concomitant]
     Active Substance: FLUTICASONE PROPIONATE
     Indication: ASTHMA
     Dosage: UNK
     Route: 065
     Dates: start: 20160428
  41. PREDNISONE. [Concomitant]
     Active Substance: PREDNISONE
     Indication: INFECTIVE PULMONARY EXACERBATION OF CYSTIC FIBROSIS
     Dosage: UNK
     Route: 065
     Dates: start: 20160614, end: 20160628
  42. SINGULAIR [Concomitant]
     Active Substance: MONTELUKAST SODIUM
     Indication: RHINITIS ALLERGIC
     Dosage: UNK
     Route: 065
     Dates: start: 20160428
  43. VFEND [Concomitant]
     Active Substance: VORICONAZOLE
     Indication: CYSTIC FIBROSIS
     Dosage: UNK
     Route: 065
     Dates: start: 20160909

REACTIONS (12)
  - Bronchiectasis [Unknown]
  - Infective pulmonary exacerbation of cystic fibrosis [Recovered/Resolved]
  - Asthma [Recovered/Resolved]
  - Condition aggravated [Recovered/Resolved]
  - Infective pulmonary exacerbation of cystic fibrosis [Recovered/Resolved]
  - Infective pulmonary exacerbation of cystic fibrosis [Recovered/Resolved]
  - Infective pulmonary exacerbation of cystic fibrosis [Recovered/Resolved]
  - Cystic fibrosis [Recovered/Resolved]
  - Infective pulmonary exacerbation of cystic fibrosis [Recovered/Resolved]
  - Infective pulmonary exacerbation of cystic fibrosis [Recovered/Resolved]
  - Pyrexia [Recovered/Resolved]
  - Asthma [Recovered/Resolved]

NARRATIVE: CASE EVENT DATE: 20160518
